FAERS Safety Report 9417698 (Version 1)
Quarter: 2013Q3

REPORT INFORMATION
  Report Type: Spontaneous
  Country: US (occurrence: US)
  Receive Date: 20130724
  Receipt Date: 20130724
  Transmission Date: 20140515
  Serious: Yes (Death, Hospitalization)
  Sender: FDA-Public Use
  Company Number: US-GLAXOSMITHKLINE-A0805977A

PATIENT
  Sex: Male

DRUGS (5)
  1. AVANDIA [Suspect]
     Indication: TYPE 2 DIABETES MELLITUS
     Route: 048
     Dates: start: 20020522
  2. NOVOLIN [Concomitant]
  3. VIOXX [Concomitant]
  4. DOXYCYCLINE [Concomitant]
  5. FLEXERIL [Concomitant]

REACTIONS (3)
  - Diabetic complication [Fatal]
  - Cardiac failure congestive [Unknown]
  - Renal failure [Unknown]
